FAERS Safety Report 19158361 (Version 1)
Quarter: 2021Q2

REPORT INFORMATION
  Report Type: Report from Study
  Country: IN (occurrence: IN)
  Receive Date: 20210420
  Receipt Date: 20210420
  Transmission Date: 20210717
  Serious: Yes (Other)
  Sender: FDA-Public Use
  Company Number: IN-MYLANLABS-2021M1023666

PATIENT
  Sex: Female

DRUGS (12)
  1. CISPLATIN. [Suspect]
     Active Substance: CISPLATIN
     Indication: GESTATIONAL TROPHOBLASTIC TUMOUR
  2. ACTINOMYCIN D [Suspect]
     Active Substance: DACTINOMYCIN
     Indication: GESTATIONAL TROPHOBLASTIC TUMOUR
  3. CYCLOPHOSPHAMIDE. [Suspect]
     Active Substance: CYCLOPHOSPHAMIDE
     Indication: GESTATIONAL TROPHOBLASTIC TUMOUR
  4. CISPLATIN. [Suspect]
     Active Substance: CISPLATIN
     Indication: BENIGN HYDATIDIFORM MOLE
     Dosage: AS A PART OF EMA?EP REGIMEN
     Route: 065
  5. ETOPOSIDE. [Suspect]
     Active Substance: ETOPOSIDE
     Indication: BENIGN HYDATIDIFORM MOLE
     Dosage: AS A PART OF EMACO AND EMA?EP REGIMEN
     Route: 065
  6. METHOTREXATE. [Suspect]
     Active Substance: METHOTREXATE
     Indication: GESTATIONAL TROPHOBLASTIC TUMOUR
  7. CYCLOPHOSPHAMIDE. [Suspect]
     Active Substance: CYCLOPHOSPHAMIDE
     Indication: BENIGN HYDATIDIFORM MOLE
     Dosage: AS A PART OF EMACO REGIMEN
     Route: 065
  8. VINCRISTINE [Suspect]
     Active Substance: VINCRISTINE
     Indication: GESTATIONAL TROPHOBLASTIC TUMOUR
  9. VINCRISTINE [Suspect]
     Active Substance: VINCRISTINE
     Indication: BENIGN HYDATIDIFORM MOLE
     Dosage: AS A PART OF EMACO REGIMEN
     Route: 065
  10. ACTINOMYCIN D [Suspect]
     Active Substance: DACTINOMYCIN
     Indication: BENIGN HYDATIDIFORM MOLE
     Dosage: AS A PART OF EMACO AND EMA?EP REGIMEN
     Route: 065
  11. ETOPOSIDE. [Suspect]
     Active Substance: ETOPOSIDE
     Indication: GESTATIONAL TROPHOBLASTIC TUMOUR
  12. METHOTREXATE. [Suspect]
     Active Substance: METHOTREXATE
     Indication: BENIGN HYDATIDIFORM MOLE
     Dosage: AS A PART OF EMACO AND EMA?EP REGIMEN
     Route: 065

REACTIONS (2)
  - Therapy non-responder [Unknown]
  - Maternal exposure during pregnancy [Unknown]
